FAERS Safety Report 6962601-6 (Version None)
Quarter: 2010Q3

REPORT INFORMATION
  Report Type: 
  Country: None (occurrence: None)
  Receive Date: 20100831
  Receipt Date: 20100825
  Transmission Date: 20110219
  Serious: Yes (Death)
  Sender: FDA-Public Use
  Company Number: 2010US000386

PATIENT
  Age: 56 Year
  Sex: Female
  Weight: 158 kg

DRUGS (1)
  1. AMEVIVE [Suspect]
     Indication: PSORIASIS
     Dosage: 7.5 MG WEEKLY IV NOS
     Route: 042
     Dates: start: 20030416

REACTIONS (1)
  - DEATH [None]
